FAERS Safety Report 6183834-5 (Version None)
Quarter: 2009Q2

REPORT INFORMATION
  Report Type: 
  Country: None (occurrence: None)
  Receive Date: 20090504
  Receipt Date: 20090423
  Transmission Date: 20091009
  Serious: Yes (Hospitalization)
  Sender: FDA-Public Use
  Company Number: AEDEU200900086

PATIENT
  Age: 36 Year
  Sex: Male

DRUGS (4)
  1. PROLASTIN [Suspect]
     Indication: ALPHA-1 ANTI-TRYPSIN DEFICIENCY
     Dosage: 3 GM; QW; IV
     Route: 042
     Dates: start: 20090305, end: 20090331
  2. VIANI [Concomitant]
  3. SPIRIVA [Concomitant]
  4. CHAMPIX [Concomitant]

REACTIONS (2)
  - ANAPHYLACTIC REACTION [None]
  - INFUSION RELATED REACTION [None]
